FAERS Safety Report 8782993 (Version 6)
Quarter: 2014Q3

REPORT INFORMATION
  Report Type: Report from Study
  Country: CA (occurrence: CA)
  Receive Date: 20120913
  Receipt Date: 20140708
  Transmission Date: 20150326
  Serious: Yes (Hospitalization, Other)
  Sender: FDA-Public Use
  Company Number: CA-BRISTOL-MYERS SQUIBB COMPANY-16927147

PATIENT
  Age: 70 Year
  Sex: Female
  Weight: 72 kg

DRUGS (15)
  1. FOLIC ACID. [Concomitant]
     Active Substance: FOLIC ACID
  2. OXAZEPAM. [Concomitant]
     Active Substance: OXAZEPAM
  3. VENTOLIN [Concomitant]
     Active Substance: ALBUTEROL SULFATE
  4. NASONEX [Concomitant]
     Active Substance: MOMETASONE FUROATE
  5. CELEBREX [Concomitant]
     Active Substance: CELECOXIB
  6. FOSAVANCE [Concomitant]
     Active Substance: ALENDRONATE SODIUM\CHOLECALCIFEROL
  7. ORENCIA [Suspect]
     Active Substance: ABATACEPT
     Indication: RHEUMATOID ARTHRITIS
     Dosage: LAST INF:30AUG2012,16APR14 NO OF INF:42?EXP:MAR2016
     Route: 042
     Dates: start: 20091120
  8. SULFASALAZINE. [Concomitant]
     Active Substance: SULFASALAZINE
  9. METHOTREXATE [Concomitant]
     Active Substance: METHOTREXATE
     Route: 058
  10. LEUCOVORIN [Concomitant]
     Active Substance: LEUCOVORIN
  11. SYNTHROID [Concomitant]
     Active Substance: LEVOTHYROXINE SODIUM
  12. PREDNISONE. [Concomitant]
     Active Substance: PREDNISONE
  13. FLOVENT [Concomitant]
     Active Substance: FLUTICASONE PROPIONATE
  14. PANTOPRAZOLE [Concomitant]
     Active Substance: PANTOPRAZOLE SODIUM
  15. FOSAMAX [Concomitant]
     Active Substance: ALENDRONATE SODIUM

REACTIONS (4)
  - Amyotrophic lateral sclerosis [Not Recovered/Not Resolved]
  - Catheter site infection [Not Recovered/Not Resolved]
  - Weight decreased [Unknown]
  - Aphagia [Unknown]

NARRATIVE: CASE EVENT DATE: 20120813
